FAERS Safety Report 8761917 (Version 5)
Quarter: 2012Q4

REPORT INFORMATION
  Report Type: Report from Study
  Country: JP (occurrence: JP)
  Receive Date: 20120830
  Receipt Date: 20121206
  Transmission Date: 20130627
  Serious: No
  Sender: FDA-Public Use
  Company Number: JP-JNJFOC-20120812861

PATIENT
  Age: 74 Year
  Sex: Male

DRUGS (12)
  1. SIMPONI [Suspect]
     Indication: RHEUMATOID ARTHRITIS
     Route: 058
     Dates: start: 20120416
  2. SIMPONI [Suspect]
     Indication: RHEUMATOID ARTHRITIS
     Route: 058
     Dates: start: 20120514
  3. SIMPONI [Suspect]
     Indication: RHEUMATOID ARTHRITIS
     Route: 058
     Dates: start: 20120319
  4. PREDONINE [Suspect]
     Indication: RHEUMATOID ARTHRITIS
     Route: 048
     Dates: start: 20120319, end: 20120513
  5. PREDONINE [Suspect]
     Indication: RHEUMATOID ARTHRITIS
     Route: 048
     Dates: start: 20120514, end: 20120610
  6. PREDONINE [Suspect]
     Indication: RHEUMATOID ARTHRITIS
     Route: 048
     Dates: start: 20120611
  7. SALAZOSULFAPYRIDINE [Concomitant]
     Indication: RHEUMATOID ARTHRITIS
     Dates: start: 20120209, end: 20120514
  8. BAKTAR [Concomitant]
     Indication: PULMONARY MYCOSIS
     Route: 048
  9. LIPITOR [Concomitant]
     Indication: DYSLIPIDAEMIA
     Route: 048
  10. EUGLUCON [Concomitant]
     Indication: DIABETES MELLITUS
     Route: 048
  11. SELBEX [Concomitant]
     Indication: GASTRITIS
     Route: 048
  12. SOLON [Concomitant]
     Indication: GASTRITIS
     Route: 048

REACTIONS (1)
  - Blood beta-D-glucan increased [Recovering/Resolving]
